FAERS Safety Report 8857378 (Version 2)
Quarter: 2013Q1

REPORT INFORMATION
  Report Type: Spontaneous
  Country: US (occurrence: US)
  Receive Date: 20121024
  Receipt Date: 20130121
  Transmission Date: 20140127
  Serious: No
  Sender: FDA-Public Use
  Company Number: US-BIOGENIDEC-2012BI046290

PATIENT
  Sex: Female

DRUGS (2)
  1. AVONEX [Suspect]
     Indication: MULTIPLE SCLEROSIS
     Route: 030
     Dates: start: 201107
  2. AVONEX [Suspect]
     Indication: MULTIPLE SCLEROSIS
     Route: 030
     Dates: start: 20110712

REACTIONS (9)
  - Hypoaesthesia [Unknown]
  - Nasopharyngitis [Unknown]
  - Aphasia [Unknown]
  - Tremor [Unknown]
  - Pain in extremity [Unknown]
  - Influenza like illness [Unknown]
  - Injection site pain [Unknown]
  - Chills [Unknown]
  - Headache [Unknown]
